FAERS Safety Report 7163910-0 (Version None)
Quarter: 2010Q4

REPORT INFORMATION
  Report Type: 
  Country: None (occurrence: None)
  Receive Date: 20101215
  Receipt Date: 20101209
  Transmission Date: 20110411
  Serious: Yes (Other)
  Sender: FDA-Public Use
  Company Number: US-PFIZER INC-2010168599

PATIENT
  Sex: Female
  Weight: 60.317 kg

DRUGS (11)
  1. DETROL LA [Suspect]
     Indication: HYPERTONIC BLADDER
     Dosage: 4 MG, DAILY
     Route: 048
     Dates: start: 20080101
  2. PREMARIN [Suspect]
     Indication: HORMONE LEVEL ABNORMAL
     Dosage: UNK
     Dates: end: 20090101
  3. NAMENDA [Suspect]
     Indication: DEMENTIA ALZHEIMER'S TYPE
     Dosage: 10 MG, 2X/DAY
     Route: 048
     Dates: start: 20090101
  4. BUPROPION [Concomitant]
     Dosage: 75 MG, DAILY
  5. LISINOPRIL [Concomitant]
     Dosage: 2.5 MG, DAILY
  6. FUROSEMIDE [Concomitant]
     Dosage: 20 MG, DAILY
  7. DIGOXIN [Concomitant]
     Dosage: 0.125 MG, DAILY
  8. LEVOTHYROXINE [Concomitant]
     Dosage: 50 UG, UNK
  9. WARFARIN [Concomitant]
     Dosage: 1MG AND 2MG ALTERNATING DAY
  10. GALANTAMINE [Concomitant]
     Dosage: 4 MG, 2X/DAY
  11. SIMVASTATIN [Concomitant]
     Dosage: UNK, DAILY

REACTIONS (2)
  - DEMENTIA ALZHEIMER'S TYPE [None]
  - HEART RATE IRREGULAR [None]
